FAERS Safety Report 9274744 (Version 1)
Quarter: 2013Q2

REPORT INFORMATION
  Report Type: Spontaneous
  Country: US (occurrence: None)
  Receive Date: 20130430
  Receipt Date: 20130430
  Transmission Date: 20140414
  Serious: Yes (Life-Threatening, Disabling, Other)
  Sender: FDA-Public Use
  Company Number: None

PATIENT
  Age: 44 Year
  Sex: 0
  Weight: 90.58 kg

DRUGS (2)
  1. COMBIVENT [Suspect]
     Indication: BRONCHITIS CHRONIC
     Dosage: 200 PUFF) 14.7 GM 2 PUFFS/FOUR TIMES
     Dates: start: 20130405, end: 20130411
  2. VENTOLIN [Suspect]
     Dosage: 200 PUFFS 1 PUFF /4-6 HOURS
     Dates: start: 20130405, end: 20130413

REACTIONS (12)
  - Dyspnoea [None]
  - Vision blurred [None]
  - Headache [None]
  - Abdominal discomfort [None]
  - Rhinorrhoea [None]
  - Dizziness [None]
  - Tachyphrenia [None]
  - Dysphonia [None]
  - Dysarthria [None]
  - Blood pressure increased [None]
  - Pain in extremity [None]
  - Confusional state [None]
